FAERS Safety Report 22141398 (Version 3)
Quarter: 2024Q4

REPORT INFORMATION
  Report Type: Spontaneous
  Country: BR (occurrence: BR)
  Receive Date: 20230327
  Receipt Date: 20241003
  Transmission Date: 20250114
  Serious: No
  Sender: CELLTRION
  Company Number: BR-CELLTRION INC.-2023BR006357

PATIENT

DRUGS (2)
  1. INFLIXIMAB [Suspect]
     Active Substance: INFLIXIMAB
     Indication: Crohn^s disease
     Dosage: 11 AMPOULES EVERY MONTH
     Route: 042
     Dates: start: 20220914
  2. INFLIXIMAB [Suspect]
     Active Substance: INFLIXIMAB
     Dosage: 4 AMPOULES EVERY 8 WEEKS
     Route: 042
     Dates: start: 20240724

REACTIONS (4)
  - Bacterial abdominal infection [Unknown]
  - Intentional dose omission [Unknown]
  - Therapy interrupted [Unknown]
  - Intentional product use issue [Unknown]

NARRATIVE: CASE EVENT DATE: 20240918
